FAERS Safety Report 15267646 (Version 2)
Quarter: 2018Q3

REPORT INFORMATION
  Report Type: Report from Study
  Country: None (occurrence: US)
  Receive Date: 20180811
  Receipt Date: 20180817
  Transmission Date: 20181010
  Serious: Yes (Other)
  Sender: FDA-Public Use
  Company Number: US-ABBVIE-18K-163-2444779-00

PATIENT
  Sex: Female

DRUGS (1)
  1. HUMIRA [Suspect]
     Active Substance: ADALIMUMAB
     Indication: RHEUMATOID ARTHRITIS
     Route: 058

REACTIONS (5)
  - Spinal column stenosis [Recovering/Resolving]
  - Cervical vertebral fracture [Recovered/Resolved]
  - Pneumonia [Recovered/Resolved]
  - Arthropod sting [Recovered/Resolved]
  - Fall [Recovering/Resolving]
